FAERS Safety Report 5825874-9 (Version None)
Quarter: 2008Q3

REPORT INFORMATION
  Report Type: 
  Country: None (occurrence: None)
  Receive Date: 20080722
  Receipt Date: 20080721
  Transmission Date: 20090109
  Serious: Yes (Other)
  Sender: FDA-Public Use
  Company Number: A0661943A

PATIENT
  Weight: 49.8957 kg

DRUGS (3)
  1. CALCIUM CARBONATE        (CALCIUM CARBONATE) [Suspect]
     Indication: PROPHYLAXIS
     Dosage: ORAL
     Route: 048
     Dates: start: 20070617
  2. NAPROXEN SODIUM [Suspect]
     Indication: PERIARTHRITIS
     Dosage: 220 MG / TWICE PER DAY / ORAL
     Route: 048
     Dates: start: 20070617
  3. ALENDRONATE SODIUM (FORMULATION UNKNOWN) [Suspect]
     Indication: DRUG USE FOR UNKNOWN INDICATION
     Dates: end: 20070701

REACTIONS (3)
  - DRUG INEFFECTIVE [None]
  - RECTAL HAEMORRHAGE [None]
  - STOMACH DISCOMFORT [None]
